FAERS Safety Report 9175743 (Version 1)
Quarter: 2012Q4

REPORT INFORMATION
  Report Type: 
  Country: JP (occurrence: JP)
  Receive Date: 20120913
  Receipt Date: 20120913
  Transmission Date: 20130627
  Serious: Yes (Other)
  Sender: FDA-Public Use
  Company Number: JP-009507513-1209JPN000727

PATIENT

DRUGS (5)
  1. REFLEX [Suspect]
     Dosage: 315 mg, Once, 21 Tablets
     Route: 048
  2. QUAZEPAM [Suspect]
     Dosage: 140 mg, Once, 7 tablets
     Route: 048
  3. RESLIN [Suspect]
     Dosage: 350 mg, Once, 7 tablets
     Route: 048
  4. DULOXETINE HYDROCHLORIDE [Suspect]
     Dosage: 140 mg, Once, 7 tablets
     Route: 048
  5. ZOLPIDEM TARTRATE [Suspect]
     Dosage: 70 mg, Once, 7 tablets
     Route: 048

REACTIONS (3)
  - Intentional overdose [Unknown]
  - Intentional overdose [None]
  - Self-medication [None]
